FAERS Safety Report 14525054 (Version 3)
Quarter: 2019Q2

REPORT INFORMATION
  Report Type: Spontaneous
  Country: US (occurrence: US)
  Receive Date: 20180213
  Receipt Date: 20190605
  Transmission Date: 20190711
  Serious: Yes (Death, Hospitalization, Other)
  Sender: FDA-Public Use
  Company Number: US-ASTRAZENECA-2018SE18069

PATIENT
  Age: 26286 Day
  Sex: Male

DRUGS (1)
  1. ONGLYZA [Suspect]
     Active Substance: SAXAGLIPTIN HYDROCHLORIDE
     Indication: TYPE 2 DIABETES MELLITUS
     Route: 048
     Dates: start: 201511, end: 201602

REACTIONS (6)
  - Acute coronary syndrome [Fatal]
  - Cardiac failure congestive [Unknown]
  - Post cardiac arrest syndrome [Fatal]
  - Cardiorenal syndrome [Fatal]
  - Cardiomyopathy [Unknown]
  - Acute kidney injury [Fatal]

NARRATIVE: CASE EVENT DATE: 20160122
